FAERS Safety Report 9804242 (Version 2)
Quarter: 2014Q1

REPORT INFORMATION
  Report Type: Report from Study
  Country: BR (occurrence: BR)
  Receive Date: 20140108
  Receipt Date: 20140108
  Transmission Date: 20141002
  Serious: Yes (Other)
  Sender: FDA-Public Use
  Company Number: PHHO2012BR014557

PATIENT
  Sex: Female

DRUGS (2)
  1. SANDOSTATIN LAR [Suspect]
     Indication: ACROMEGALY
     Dosage: FOETAL DRUG EXPOSURE VIA FATHER
     Route: 065
     Dates: start: 20110420, end: 20111005
  2. SOM230 [Suspect]
     Indication: ACROMEGALY
     Dosage: FOETAL DRUG EXPOSURE VIA FATHER
     Route: 065
     Dates: start: 20111104

REACTIONS (2)
  - Jaundice [Recovered/Resolved]
  - Exposure via father [Unknown]
